FAERS Safety Report 4949038-6 (Version None)
Quarter: 2006Q1

REPORT INFORMATION
  Report Type: 
  Country: None (occurrence: None)
  Receive Date: 20060321
  Receipt Date: 20041203
  Transmission Date: 20060701
  Serious: Yes (Other)
  Sender: FDA-Public Use
  Company Number: GB-GLAXOSMITHKLINE-B0361695A

PATIENT
  Sex: Female

DRUGS (2)
  1. PAROXETINE HYDROCHLORIDE [Suspect]
     Route: 065
  2. LOFEPRAMINE [Suspect]
     Route: 065

REACTIONS (10)
  - DEPRESSION [None]
  - DISINHIBITION [None]
  - DRUG WITHDRAWAL SYNDROME [None]
  - HYPOMANIA [None]
  - ILL-DEFINED DISORDER [None]
  - IRRITABILITY [None]
  - MALAISE [None]
  - NIGHT SWEATS [None]
  - SLEEP DISORDER [None]
  - SUICIDAL IDEATION [None]
